FAERS Safety Report 9115789 (Version 1)
Quarter: 2013Q1

REPORT INFORMATION
  Report Type: Spontaneous
  Country: GB (occurrence: None)
  Receive Date: 20130129
  Receipt Date: 20130129
  Transmission Date: 20140127
  Serious: Yes (Death)
  Sender: FDA-Public Use
  Company Number: GER/UKI/13/0027632

PATIENT
  Age: 72 Year
  Sex: Female
  Weight: 55 kg

DRUGS (6)
  1. DONEPEZIL (DONEPEZIL) [Suspect]
     Indication: PRODUCT USED FOR UNKNOWN INDICATION
  2. ADCAL-D3 (LEKOVITCA) [Concomitant]
  3. ENOXAPARIN (ENOXAPARIN) [Concomitant]
  4. MAGNESIUM HYDROXIDE (MAGNESIUM HYDROXIDE) [Concomitant]
  5. PARACETAMOL (PARACETAMOL) [Concomitant]
  6. SENNOSIDES (SENNOSIDE A+B) [Concomitant]

REACTIONS (1)
  - Gastrointestinal haemorrhage [None]
